FAERS Safety Report 24346089 (Version 4)
Quarter: 2025Q1

REPORT INFORMATION
  Report Type: Report from Study
  Country: US (occurrence: US)
  Receive Date: 20240921
  Receipt Date: 20250228
  Transmission Date: 20250408
  Serious: Yes (Death, Other)
  Sender: NOVARTIS
  Company Number: US-002147023-NVSC2024US188018

PATIENT
  Age: 74 Year
  Sex: Male
  Weight: 97.52 kg

DRUGS (1)
  1. PLUVICTO [Suspect]
     Active Substance: LUTETIUM LU-177 VIPIVOTIDE TETRAXETAN
     Indication: Prostate cancer
     Route: 042
     Dates: start: 20240807, end: 20240807

REACTIONS (14)
  - Illness [Fatal]
  - Prostate cancer [Unknown]
  - Malignant neoplasm progression [Unknown]
  - Pelvic infection [Unknown]
  - Lymphadenopathy [Unknown]
  - Fall [Unknown]
  - Contusion [Unknown]
  - Mediastinum neoplasm [Unknown]
  - Retroperitoneal disorder [Unknown]
  - Liver disorder [Unknown]
  - Jaundice [Unknown]
  - General physical health deterioration [Recovered/Resolved with Sequelae]
  - Asthenia [Unknown]
  - Fatigue [Unknown]

NARRATIVE: CASE EVENT DATE: 20240807
